FAERS Safety Report 5980363-6 (Version None)
Quarter: 2008Q4

REPORT INFORMATION
  Report Type: 
  Country: None (occurrence: None)
  Receive Date: 20081205
  Receipt Date: 20071116
  Transmission Date: 20090506
  Serious: No
  Sender: FDA-Public Use
  Company Number: A0685230A

PATIENT
  Age: 24 Year
  Sex: Male

DRUGS (1)
  1. COMMIT [Suspect]
     Dates: start: 20071001, end: 20071001

REACTIONS (4)
  - MALAISE [None]
  - NAUSEA [None]
  - THROAT IRRITATION [None]
  - VOMITING [None]
